FAERS Safety Report 8730203 (Version 4)
Quarter: 2013Q1

REPORT INFORMATION
  Report Type: Report from Study
  Country: SE (occurrence: SE)
  Receive Date: 20120817
  Receipt Date: 20121127
  Transmission Date: 20140127
  Serious: Yes (Death, Life-Threatening, Hospitalization, Disabling, Other)
  Sender: FDA-Public Use
  Company Number: SE-ASTRAZENECA-2012SE57042

PATIENT
  Age: 30605 Day
  Sex: Female

DRUGS (6)
  1. AZD6140 [Suspect]
     Indication: ACUTE MYOCARDIAL INFARCTION
     Dosage: 180 MG LOADING DOSE
     Route: 048
     Dates: start: 20120810
  2. TROMBYL [Suspect]
     Indication: ACUTE MYOCARDIAL INFARCTION
     Route: 048
     Dates: start: 20120810, end: 20120810
  3. ANGIOX [Suspect]
     Route: 042
     Dates: start: 20120810, end: 20120810
  4. SIMVASTATIN [Concomitant]
     Indication: ACUTE MYOCARDIAL INFARCTION
     Route: 048
     Dates: start: 20120810, end: 20120811
  5. ISORBIDMONONITRAT [Concomitant]
     Indication: ANGINA PECTORIS
     Route: 048
     Dates: start: 20120810, end: 20120811
  6. TRIATEC [Concomitant]
     Indication: HYPERTENSION
     Route: 048
     Dates: start: 20120810, end: 20120811

REACTIONS (1)
  - Cerebral haemorrhage [Fatal]
